FAERS Safety Report 15782632 (Version 2)
Quarter: 2019Q1

REPORT INFORMATION
  Report Type: Report from Study
  Country: TN (occurrence: TN)
  Receive Date: 20190102
  Receipt Date: 20190205
  Transmission Date: 20190417
  Serious: Yes (Death, Hospitalization)
  Sender: FDA-Public Use
  Company Number: TN-SA-2018SA395704

PATIENT
  Age: 87 Year
  Sex: Female

DRUGS (6)
  1. ALPRESS [Concomitant]
     Active Substance: PRAZOSIN
     Dosage: UNK
     Route: 065
  2. CORVASAL [MOLSIDOMINE] [Concomitant]
     Dosage: UNK
  3. CINCOR [Concomitant]
     Dosage: UNK
  4. INSULIN GLARGINE [Suspect]
     Active Substance: INSULIN GLARGINE
     Indication: DIABETES MELLITUS
     Dosage: 16 U, QD
     Route: 058
     Dates: start: 20171220
  5. CALCIPARINE [Concomitant]
     Active Substance: HEPARIN CALCIUM
     Dosage: UNK
  6. LOXEN [NICARDIPINE HYDROCHLORIDE] [Concomitant]
     Active Substance: NICARDIPINE HYDROCHLORIDE
     Dosage: UNK

REACTIONS (5)
  - Pulmonary oedema [Fatal]
  - Respiratory arrest [Fatal]
  - Dyspnoea [Fatal]
  - White blood cell count decreased [Recovering/Resolving]
  - General physical health deterioration [Recovering/Resolving]

NARRATIVE: CASE EVENT DATE: 201810
